FAERS Safety Report 12819380 (Version 1)
Quarter: 2016Q4

REPORT INFORMATION
  Report Type: Spontaneous
  Country: US (occurrence: US)
  Receive Date: 20161006
  Receipt Date: 20161006
  Transmission Date: 20170207
  Serious: Yes (Other)
  Sender: FDA-Public Use
  Company Number: None

PATIENT
  Age: 30 Year
  Sex: Female

DRUGS (1)
  1. SUBOXONE [Suspect]
     Active Substance: BUPRENORPHINE HYDROCHLORIDE\NALOXONE HYDROCHLORIDE
     Indication: CEREBELLAR ATAXIA
     Dosage: 1 OF EACH   2/0.5MG + 4/1 MG DAILY SUBLINGUAL
     Route: 060
     Dates: start: 20160514

REACTIONS (1)
  - Glossodynia [None]

NARRATIVE: CASE EVENT DATE: 20161005
